FAERS Safety Report 9836782 (Version 1)
Quarter: 2014Q1

REPORT INFORMATION
  Report Type: Spontaneous
  Country: US (occurrence: US)
  Receive Date: 20140123
  Receipt Date: 20140123
  Transmission Date: 20141002
  Serious: No
  Sender: FDA-Public Use
  Company Number: US-PFIZER INC-2014015860

PATIENT
  Sex: Female

DRUGS (1)
  1. PREMPRO [Suspect]
     Indication: MENORRHAGIA
     Dosage: UNK
     Dates: start: 2013

REACTIONS (3)
  - Breast engorgement [Unknown]
  - Breast pain [Unknown]
  - Intentional drug misuse [Unknown]
